FAERS Safety Report 9413895 (Version 8)
Quarter: 2015Q2

REPORT INFORMATION
  Report Type: Report from Study
  Country: BR (occurrence: BR)
  Receive Date: 20130723
  Receipt Date: 20150427
  Transmission Date: 20150821
  Serious: Yes (Hospitalization, Disabling, Other)
  Sender: FDA-Public Use
  Company Number: BR-ROCHE-1134789

PATIENT
  Sex: Female
  Weight: 65 kg

DRUGS (17)
  1. OFTAN [Concomitant]
     Active Substance: TIMOLOL MALEATE
  2. CHLORTHALIDONE. [Concomitant]
     Active Substance: CHLORTHALIDONE
  3. PANTOPRAZOLE [Concomitant]
     Active Substance: PANTOPRAZOLE SODIUM
  4. METICORTEN [Concomitant]
     Active Substance: PREDNISONE
     Indication: PRODUCT USED FOR UNKNOWN INDICATION
  5. FOLIC ACID. [Concomitant]
     Active Substance: FOLIC ACID
  6. METHOTREXATE [Concomitant]
     Active Substance: METHOTREXATE
  7. NAPRIX [Concomitant]
     Active Substance: RAMIPRIL
     Indication: PRODUCT USED FOR UNKNOWN INDICATION
  8. TECNOMET [Concomitant]
     Active Substance: METHOTREXATE
  9. PREDNISONE. [Concomitant]
     Active Substance: PREDNISONE
     Route: 065
  10. DAFLON [Concomitant]
     Active Substance: DIOSMIN\HESPERIDIN
  11. CILOSTAZOL. [Concomitant]
     Active Substance: CILOSTAZOL
  12. ENALAPRIL [Concomitant]
     Active Substance: ENALAPRIL
     Indication: PRODUCT USED FOR UNKNOWN INDICATION
  13. LOSARTAN [Concomitant]
     Active Substance: LOSARTAN
  14. DOLAMIN (BRAZIL) [Concomitant]
  15. ARAVA [Concomitant]
     Active Substance: LEFLUNOMIDE
  16. MABTHERA [Suspect]
     Active Substance: RITUXIMAB
     Indication: RHEUMATOID ARTHRITIS
     Route: 042
     Dates: start: 20120619, end: 201310
  17. LYRICA [Concomitant]
     Active Substance: PREGABALIN

REACTIONS (13)
  - Infection [Unknown]
  - Immunodeficiency [Not Recovered/Not Resolved]
  - Infection [Recovered/Resolved]
  - Overweight [Recovered/Resolved]
  - Ill-defined disorder [Not Recovered/Not Resolved]
  - Device dislocation [Recovered/Resolved]
  - Paraesthesia [Recovering/Resolving]
  - Localised infection [Recovered/Resolved]
  - Drug dose omission [Unknown]
  - Device related infection [Unknown]
  - Arthropathy [Unknown]
  - Medical device complication [Unknown]
  - Impaired healing [Recovered/Resolved]
